FAERS Safety Report 23995579 (Version 1)
Quarter: 2024Q2

REPORT INFORMATION
  Report Type: Spontaneous
  Country: RU (occurrence: RU)
  Receive Date: 20240620
  Receipt Date: 20240620
  Transmission Date: 20240716
  Serious: Yes (Other)
  Sender: FDA-Public Use
  Company Number: None

PATIENT
  Age: 39 Year
  Sex: Male
  Weight: 80 kg

DRUGS (2)
  1. TAFINLAR [Suspect]
     Active Substance: DABRAFENIB MESYLATE
     Indication: Malignant melanoma
     Dosage: 300 MG (PER DAY CONTINUOUSLY)
     Route: 048
     Dates: start: 20221014, end: 20240517
  2. MEKINIST [Suspect]
     Active Substance: TRAMETINIB DIMETHYL SULFOXIDE
     Indication: Malignant melanoma
     Dosage: 2 MG (PER DAY CONTINUOUSLY)
     Route: 048
     Dates: start: 20221014, end: 20240517

REACTIONS (5)
  - Angioedema [Recovered/Resolved]
  - Swelling face [Recovered/Resolved]
  - Skin swelling [Recovered/Resolved]
  - Lip swelling [Recovered/Resolved]
  - Hyperaemia [Recovered/Resolved]

NARRATIVE: CASE EVENT DATE: 20240517
